FAERS Safety Report 6726610-4 (Version None)
Quarter: 2010Q2

REPORT INFORMATION
  Report Type: 
  Country: None (occurrence: None)
  Receive Date: 20100514
  Receipt Date: 20100427
  Transmission Date: 20101027
  Serious: Yes (Other)
  Sender: FDA-Public Use
  Company Number: FR-PFIZER INC-2010050056

PATIENT
  Age: 61 Year
  Sex: Female

DRUGS (5)
  1. TAHOR [Suspect]
     Indication: HYPERCHOLESTEROLAEMIA
     Dosage: 40 MG, UNK
     Dates: start: 20091001
  2. TAHOR [Suspect]
     Indication: LOW DENSITY LIPOPROTEIN INCREASED
  3. EZETROL [Suspect]
     Dosage: UNK
     Dates: start: 20100301, end: 20100402
  4. RANITIDINE HCL [Concomitant]
     Dosage: UNK
  5. PLAVIX [Concomitant]
     Dosage: UNK

REACTIONS (5)
  - BLOOD CREATINE PHOSPHOKINASE INCREASED [None]
  - CHEST PAIN [None]
  - INTESTINAL OBSTRUCTION [None]
  - PALPITATIONS [None]
  - PARAESTHESIA [None]
